FAERS Safety Report 12918568 (Version 2)
Quarter: 2016Q4

REPORT INFORMATION
  Report Type: Spontaneous
  Country: IL (occurrence: IL)
  Receive Date: 20161107
  Receipt Date: 20161118
  Transmission Date: 20170207
  Serious: Yes (Disabling, Other)
  Sender: FDA-Public Use
  Company Number: IL-BAYER-2016-210288

PATIENT
  Age: 83 Year
  Sex: Female

DRUGS (2)
  1. ASPIRIN. [Suspect]
     Active Substance: ASPIRIN
  2. CARDILOC [Concomitant]
     Active Substance: BISOPROLOL FUMARATE

REACTIONS (5)
  - Feeding disorder [Not Recovered/Not Resolved]
  - Cerebrovascular accident [None]
  - Aphasia [Not Recovered/Not Resolved]
  - Paralysis [Not Recovered/Not Resolved]
  - Disorientation [Not Recovered/Not Resolved]
